FAERS Safety Report 4860486-5 (Version None)
Quarter: 2005Q4

REPORT INFORMATION
  Report Type: 
  Country: None (occurrence: None)
  Receive Date: 20051219
  Receipt Date: 20051209
  Transmission Date: 20060501
  Serious: Yes (Other)
  Sender: FDA-Public Use
  Company Number: CA-BRISTOL-MYERS SQUIBB COMPANY-13217880

PATIENT
  Age: 70 Year
  Sex: Female

DRUGS (15)
  1. TEQUIN [Suspect]
  2. ACETAMINOPHEN [Concomitant]
  3. DOCUSATE [Concomitant]
  4. DOMPERIDONE [Concomitant]
  5. FUROSEMIDE [Concomitant]
  6. LORAZEPAM [Concomitant]
  7. METOLAZONE [Concomitant]
  8. METOPROLOL [Concomitant]
  9. NOREPINEPHRINE [Concomitant]
  10. OMEPRAZOLE [Concomitant]
  11. POTASSIUM CHLORIDE [Concomitant]
  12. SALBUTAMOL [Concomitant]
  13. SERTRALINE HCL [Concomitant]
  14. CARBIDOPA AND LEVODOPA [Concomitant]
     Route: 048
  15. IPRATROPIUM BROMIDE [Concomitant]

REACTIONS (1)
  - HYPERGLYCAEMIA [None]
